FAERS Safety Report 10872922 (Version 1)
Quarter: 2015Q1

REPORT INFORMATION
  Report Type: Spontaneous
  Country: US (occurrence: None)
  Receive Date: 20150223
  Receipt Date: 20150223
  Transmission Date: 20150721
  Serious: No
  Sender: FDA-Public Use
  Company Number: None

PATIENT
  Age: 64 Year
  Sex: Female
  Weight: 85.5 kg

DRUGS (1)
  1. DOCETAXEL. [Suspect]
     Active Substance: DOCETAXEL
     Indication: PROSTATE CANCER
     Dosage: 150 MG OTHER IV
     Route: 042
     Dates: start: 20150126, end: 20150126

REACTIONS (11)
  - Arthralgia [None]
  - Headache [None]
  - Malaise [None]
  - Back pain [None]
  - Erythema [None]
  - Myalgia [None]
  - Musculoskeletal pain [None]
  - Chills [None]
  - Infusion related reaction [None]
  - Burning sensation [None]
  - Flushing [None]

NARRATIVE: CASE EVENT DATE: 20150126
